FAERS Safety Report 8293021-2 (Version None)
Quarter: 2012Q2

REPORT INFORMATION
  Report Type: 
  Country: None (occurrence: None)
  Receive Date: 20120417
  Receipt Date: 20111020
  Transmission Date: 20120825
  Serious: No
  Sender: FDA-Public Use
  Company Number: US-ASTRAZENECA-2011SE63712

PATIENT
  Age: 69 Year
  Sex: Male

DRUGS (2)
  1. FLU SHOT [Suspect]
     Route: 065
  2. NEXIUM [Suspect]
     Route: 048

REACTIONS (1)
  - NASOPHARYNGITIS [None]
